FAERS Safety Report 11302922 (Version 13)
Quarter: 2017Q1

REPORT INFORMATION
  Report Type: Spontaneous
  Country: US (occurrence: US)
  Receive Date: 20150723
  Receipt Date: 20170317
  Transmission Date: 20170428
  Serious: Yes (Death, Hospitalization, Other)
  Sender: FDA-Public Use
  Company Number: US-PFIZER INC-2015243778

PATIENT
  Age: 74 Year
  Sex: Female
  Weight: 49 kg

DRUGS (8)
  1. MORPHINE [Concomitant]
     Active Substance: MORPHINE
     Indication: PAIN
     Dosage: UNK
  2. VFEND [Suspect]
     Active Substance: VORICONAZOLE
     Indication: FUNGAL INFECTION
     Dosage: 500 MG, DAILY (ONE AND HALF PILL IN THE MORNING AND A PILL AT NIGHT)
  3. OXYCODONE [Concomitant]
     Active Substance: OXYCODONE
     Dosage: UNK
  4. VFEND [Suspect]
     Active Substance: VORICONAZOLE
     Indication: LUNG INFECTION
     Dosage: 500 MG, DAILY(1.5 TABLET BY MOUTH EVERY MORNING, AND 1 TABLET EVERY NIGHT)( (300 MG AM,200 MG NITE )
  5. PREDNISONE. [Concomitant]
     Active Substance: PREDNISONE
     Indication: OSTEOPOROSIS
     Dosage: 5 MG, 1X/DAY(CURRENTLY TAKING 4 A DAY FOR 4 WEEKS/WILL GO BACK TO 2 A DAY; TAKING ATLEAST 3 YEARS
     Route: 048
  6. PREDNISONE. [Concomitant]
     Active Substance: PREDNISONE
     Indication: RHEUMATOID ARTHRITIS
  7. VFEND [Suspect]
     Active Substance: VORICONAZOLE
     Indication: LUNG INFECTION
     Dosage: 500 MG, DAILY (300 MG^S IN THE AM AND 200 MG^S AT NITE)
  8. VFEND [Suspect]
     Active Substance: VORICONAZOLE
     Indication: FUNGAL INFECTION

REACTIONS (11)
  - Death [Fatal]
  - Gastric disorder [Recovered/Resolved]
  - Cough [Recovered/Resolved]
  - Fall [Recovered/Resolved]
  - Upper limb fracture [Unknown]
  - Muscle disorder [Unknown]
  - Pneumonia [Unknown]
  - Haemoptysis [Recovered/Resolved]
  - Drug dose omission [Unknown]
  - Lower limb fracture [Recovered/Resolved]
  - Femur fracture [Unknown]

NARRATIVE: CASE EVENT DATE: 201604
